FAERS Safety Report 4665221-1 (Version None)
Quarter: 2005Q2

REPORT INFORMATION
  Report Type: 
  Country: None (occurrence: None)
  Receive Date: 20050517
  Receipt Date: 20050428
  Transmission Date: 20051028
  Serious: Yes (Other)
  Sender: FDA-Public Use
  Company Number: USA050496816

PATIENT
  Age: 30 Year
  Sex: Male

DRUGS (1)
  1. QUINIDINE GLUCONATE [Suspect]
     Indication: MALARIA
     Dosage: 0.02 MG/KG/MIN
     Dates: start: 20050426, end: 20050428

REACTIONS (2)
  - ATRIAL FLUTTER [None]
  - DRUG LEVEL INCREASED [None]
